FAERS Safety Report 21024674 (Version 4)
Quarter: 2024Q2

REPORT INFORMATION
  Report Type: Spontaneous
  Country: US (occurrence: US)
  Receive Date: 20220629
  Receipt Date: 20240415
  Transmission Date: 20240716
  Serious: Yes (Disabling, Other)
  Sender: FDA-Public Use
  Company Number: US-JNJFOC-20220644297

PATIENT
  Age: 6 Decade
  Sex: Female

DRUGS (6)
  1. ELMIRON [Suspect]
     Active Substance: PENTOSAN POLYSULFATE SODIUM
     Indication: Cystitis interstitial
     Route: 048
     Dates: start: 2010, end: 2018
  2. MELOXICAM [Concomitant]
     Active Substance: MELOXICAM
     Indication: Arthritis
     Dates: start: 201308
  3. DULOXETINE HYDROCHLORIDE [Concomitant]
     Active Substance: DULOXETINE HYDROCHLORIDE
     Indication: Depression
     Dates: start: 201512
  4. BACLOFEN [Concomitant]
     Active Substance: BACLOFEN
     Indication: Muscle relaxant therapy
     Dates: start: 201603
  5. TRAZODONE HYDROCHLORIDE [Concomitant]
     Active Substance: TRAZODONE HYDROCHLORIDE
     Indication: Depression
     Dates: start: 201403
  6. GABAPENTIN [Concomitant]
     Active Substance: GABAPENTIN
     Indication: Pain
     Dates: start: 201502

REACTIONS (6)
  - Blindness [Unknown]
  - Dry age-related macular degeneration [Not Recovered/Not Resolved]
  - Retinitis pigmentosa [Not Recovered/Not Resolved]
  - Maculopathy [Not Recovered/Not Resolved]
  - Cataract [Not Recovered/Not Resolved]
  - Acquired pigmented retinopathy [Not Recovered/Not Resolved]

NARRATIVE: CASE EVENT DATE: 20160101
